FAERS Safety Report 18951584 (Version 1)
Quarter: 2021Q1

REPORT INFORMATION
  Report Type: Spontaneous
  Country: US (occurrence: US)
  Receive Date: 20210301
  Receipt Date: 20210301
  Transmission Date: 20210420
  Serious: Yes (Hospitalization, Other)
  Sender: FDA-Public Use
  Company Number: US-DRREDDYS-USA/USA/21/0132313

PATIENT
  Age: 55 Year
  Sex: Female

DRUGS (1)
  1. TACROLIMUS. [Suspect]
     Active Substance: TACROLIMUS
     Indication: IMMUNOSUPPRESSANT DRUG THERAPY
     Dosage: DURATION: 3 MONTHS AND 3 WEEKS

REACTIONS (2)
  - Haemorrhage intracranial [Recovering/Resolving]
  - Posterior reversible encephalopathy syndrome [Recovering/Resolving]
